FAERS Safety Report 17672690 (Version 2)
Quarter: 2020Q4

REPORT INFORMATION
  Report Type: Spontaneous
  Country: US (occurrence: US)
  Receive Date: 20200415
  Receipt Date: 20201123
  Transmission Date: 20210113
  Serious: Yes (Death, Other)
  Sender: FDA-Public Use
  Company Number: US-ASTRAZENECA-2020SE50782

PATIENT
  Age: 44 Year
  Sex: Female

DRUGS (1)
  1. DURVALUMAB. [Suspect]
     Active Substance: DURVALUMAB
     Indication: LUNG SQUAMOUS CELL CARCINOMA STAGE III
     Dosage: (10 MG/KG EVERY TWO WEEKS FOR APPROXIMATELY EIGHT MONTHS).
     Route: 042
     Dates: start: 201802, end: 201902

REACTIONS (6)
  - Systemic lupus erythematosus [Fatal]
  - Right ventricular failure [Fatal]
  - Pulmonary arterial hypertension [Fatal]
  - Autoimmune hypothyroidism [Unknown]
  - Diabetes mellitus [Unknown]
  - Adrenal insufficiency [Unknown]
